FAERS Safety Report 9251395 (Version 1)
Quarter: 2013Q1

REPORT INFORMATION
  Report Type: Spontaneous
  Country: US (occurrence: None)
  Receive Date: 20130305
  Receipt Date: 20130305
  Transmission Date: 20140127
  Serious: Yes (Other)
  Sender: FDA-Public Use
  Company Number: 163-21880-12090376

PATIENT
  Age: 66 Year
  Sex: Male
  Weight: 103.42 kg

DRUGS (2)
  1. REVLIMID [Suspect]
     Indication: MYELODYSPLASTIC SYNDROME
     Dosage: 28 IN 28 D
     Route: 048
     Dates: start: 20120718, end: 20120828
  2. BLOOD(BLOOD AND RELATED PRODUCTS)(UNKNOWN) [Concomitant]

REACTIONS (2)
  - Full blood count decreased [None]
  - White blood cell count decreased [None]
